FAERS Safety Report 8352435-2 (Version None)
Quarter: 2012Q2

REPORT INFORMATION
  Report Type: 
  Country: None (occurrence: None)
  Receive Date: 20120511
  Receipt Date: 20120504
  Transmission Date: 20120825
  Serious: Yes (Hospitalization)
  Sender: FDA-Public Use
  Company Number: US-ABBOTT-12P-163-0932985-00

PATIENT
  Sex: Female
  Weight: 50.848 kg

DRUGS (3)
  1. PREDNISONE [Concomitant]
     Indication: CROHN'S DISEASE
  2. HUMIRA [Suspect]
     Indication: CROHN'S DISEASE
     Dates: start: 20110801, end: 20120401
  3. IMURAN [Concomitant]
     Indication: CROHN'S DISEASE

REACTIONS (8)
  - INFECTION [None]
  - SEPSIS [None]
  - ABDOMINAL PAIN UPPER [None]
  - CHILLS [None]
  - PYREXIA [None]
  - DRUG INEFFECTIVE [None]
  - BLOOD PRESSURE DECREASED [None]
  - HEART RATE INCREASED [None]
